FAERS Safety Report 6311747-4 (Version None)
Quarter: 2009Q3

REPORT INFORMATION
  Report Type: 
  Country: None (occurrence: None)
  Receive Date: 20090813
  Receipt Date: 20090813
  Transmission Date: 20100115
  Serious: Yes (Other)
  Sender: FDA-Public Use
  Company Number: None

PATIENT
  Sex: Female
  Weight: 50.8029 kg

DRUGS (1)
  1. PLAQUENIL [Suspect]
     Indication: RHEUMATOID ARTHRITIS
     Dosage: 200 MG - (2 TABS) 1 A DAY MAY 20, 2008 - MOST OF JULY 09 EXCEPT FOR FOCUS

REACTIONS (7)
  - ANGER [None]
  - CONFUSIONAL STATE [None]
  - EMOTIONAL DISTRESS [None]
  - EYE DISORDER [None]
  - FEELING ABNORMAL [None]
  - MEMORY IMPAIRMENT [None]
  - VISION BLURRED [None]
